FAERS Safety Report 24111867 (Version 2)
Quarter: 2024Q3

REPORT INFORMATION
  Report Type: Spontaneous
  Country: US (occurrence: US)
  Receive Date: 20240718
  Receipt Date: 20240722
  Transmission Date: 20241017
  Serious: No
  Sender: LEO PHARM
  Company Number: US-LEO Pharma-372016

PATIENT
  Age: 57 Year
  Sex: Female

DRUGS (1)
  1. ADBRY [Suspect]
     Active Substance: TRALOKINUMAB-LDRM
     Indication: Dermatitis atopic
     Route: 058
     Dates: start: 202405

REACTIONS (4)
  - Erythema [Unknown]
  - Swelling [Unknown]
  - Injection site warmth [Unknown]
  - Skin warm [Unknown]
